FAERS Safety Report 5951837-9 (Version None)
Quarter: 2008Q4

REPORT INFORMATION
  Report Type: 
  Country: None (occurrence: None)
  Receive Date: 20081113
  Receipt Date: 20081107
  Transmission Date: 20090506
  Serious: Yes (Death)
  Sender: FDA-Public Use
  Company Number: B0546021A

PATIENT
  Sex: Female

DRUGS (1)
  1. LAPATINIB [Suspect]

REACTIONS (1)
  - BREAST CANCER [None]
